FAERS Safety Report 25795514 (Version 5)
Quarter: 2025Q4

REPORT INFORMATION
  Report Type: Report from Study
  Country: CN (occurrence: CN)
  Receive Date: 20250912
  Receipt Date: 20251006
  Transmission Date: 20260118
  Serious: Yes (Hospitalization)
  Sender: DAIICHI
  Company Number: CN-DSJP-DS-2025-163929-CN

PATIENT
  Sex: Female
  Weight: 67.5 kg

DRUGS (33)
  1. ENHERTU [Suspect]
     Active Substance: FAM-TRASTUZUMAB DERUXTECAN-NXKI
     Indication: Breast cancer
     Dosage: UNK, ONCE EVERY 3 WK
     Route: 041
     Dates: start: 20241217, end: 20241217
  2. ENHERTU [Suspect]
     Active Substance: FAM-TRASTUZUMAB DERUXTECAN-NXKI
     Dosage: UNK
     Route: 041
     Dates: start: 20250108, end: 20250108
  3. ENHERTU [Suspect]
     Active Substance: FAM-TRASTUZUMAB DERUXTECAN-NXKI
     Dosage: UNK
     Route: 041
     Dates: start: 20250211, end: 20250211
  4. ENHERTU [Suspect]
     Active Substance: FAM-TRASTUZUMAB DERUXTECAN-NXKI
     Dosage: UNK
     Route: 041
     Dates: start: 20250409, end: 20250409
  5. ENHERTU [Suspect]
     Active Substance: FAM-TRASTUZUMAB DERUXTECAN-NXKI
     Dosage: UNK
     Route: 041
     Dates: start: 20250516, end: 20250516
  6. ENHERTU [Suspect]
     Active Substance: FAM-TRASTUZUMAB DERUXTECAN-NXKI
     Dosage: UNK
     Route: 041
     Dates: start: 20250606, end: 20250606
  7. ENHERTU [Suspect]
     Active Substance: FAM-TRASTUZUMAB DERUXTECAN-NXKI
     Dosage: UNK
     Route: 041
     Dates: start: 20250702, end: 20250702
  8. ENHERTU [Suspect]
     Active Substance: FAM-TRASTUZUMAB DERUXTECAN-NXKI
     Dosage: UNK
     Route: 041
     Dates: start: 20250730, end: 20250730
  9. DIPHENHYDRAMINE HYDROCHLORIDE [Concomitant]
     Active Substance: DIPHENHYDRAMINE HYDROCHLORIDE
     Indication: Allergy prophylaxis
     Dosage: 20 MG, AS NEEDED
     Route: 030
     Dates: start: 20241217
  10. DEXAMETHASONE SODIUM PHOSPHATE [Concomitant]
     Active Substance: DEXAMETHASONE SODIUM PHOSPHATE
     Indication: Allergy prophylaxis
     Dosage: 5 MG, AS NEEDED
     Route: 042
     Dates: start: 20241217
  11. DEXAMETHASONE SODIUM PHOSPHATE [Concomitant]
     Active Substance: DEXAMETHASONE SODIUM PHOSPHATE
     Indication: Prophylaxis of nausea and vomiting
     Dosage: 5 MG, OTHER ST
     Route: 042
     Dates: start: 20250730, end: 20250730
  12. OXYCODONE HYDROCHLORIDE [Concomitant]
     Active Substance: OXYCODONE HYDROCHLORIDE
     Indication: Analgesic therapy
     Dosage: 10 MG, BID
     Route: 048
     Dates: start: 20240621
  13. PREGABALIN [Concomitant]
     Active Substance: PREGABALIN
     Indication: Myalgia
     Dosage: 75 MG, BID
     Route: 048
     Dates: start: 20240621
  14. HERBALS [Concomitant]
     Active Substance: HERBALS
     Indication: Anaemia
     Dosage: 8 G, BID
     Route: 048
     Dates: start: 20240626
  15. IBANDRONATE SODIUM [Concomitant]
     Active Substance: IBANDRONATE SODIUM
     Indication: Metastases to bone
     Dosage: 4 MG, ONCE EVERY 1 MO
     Route: 042
     Dates: start: 20020723
  16. IBANDRONATE SODIUM [Concomitant]
     Active Substance: IBANDRONATE SODIUM
     Indication: Bone demineralisation
     Dosage: 4 MG, OTHER ST
     Route: 041
     Dates: start: 20250730, end: 20250730
  17. ONDANSETRON [Concomitant]
     Active Substance: ONDANSETRON
     Indication: Prophylaxis of nausea and vomiting
     Dosage: 8 MG, BID (ORAL SOLUBLE PELLICLES)
     Route: 048
     Dates: start: 20240730
  18. DI YU SHENG BAI [Concomitant]
     Indication: White blood cell count decreased
     Dosage: 4 DOSAGE FORM(TAB), TID
     Route: 048
     Dates: start: 20240730
  19. CALCIUM CARBONATE\CHOLECALCIFEROL [Concomitant]
     Active Substance: CALCIUM CARBONATE\CHOLECALCIFEROL
     Indication: Blood calcium decreased
     Dosage: 1 DOSAGE FORM(TAB), QD
     Route: 048
     Dates: start: 20240730
  20. VITAMIN D2 [Concomitant]
     Active Substance: ERGOCALCIFEROL
     Indication: Blood calcium decreased
     Dosage: 125 MG, QD
     Route: 048
     Dates: start: 20240730
  21. COMPOUND EJIAO JIANG [Concomitant]
     Indication: Anaemia
     Dosage: 20 ML, TID, ST
     Route: 048
     Dates: start: 20240829
  22. COMPOUND EJIAO JIANG [Concomitant]
     Indication: Prophylaxis
     Dosage: 20 ML, TID
     Route: 048
     Dates: start: 20250516
  23. HERBALS [Concomitant]
     Active Substance: HERBALS
     Indication: Anaemia
     Dosage: 10 ML, TID, ST
     Route: 048
     Dates: start: 20240829
  24. HORSE CHESTNUT [Concomitant]
     Active Substance: HORSE CHESTNUT
     Indication: Erythema
     Dosage: 0.4 G, BID
     Route: 048
     Dates: start: 20240927
  25. MOMETASONE FUROATE [Concomitant]
     Active Substance: MOMETASONE FUROATE
     Indication: Erythema
     Dosage: 0.2 G, QD (EXTERNAL USE)
     Route: 050
     Dates: start: 20240927
  26. QI JIAO SHENG BAI [Concomitant]
     Indication: White blood cell count decreased
     Dosage: 4 DOSAGE FORM (TAP), TID
     Route: 048
     Dates: start: 20250211
  27. QI JIAO SHENG BAI [Concomitant]
     Indication: Prophylaxis
  28. COBAMAMIDE [Concomitant]
     Active Substance: COBAMAMIDE
     Indication: White blood cell count decreased
     Dosage: 1.5 MG, TID
     Route: 048
     Dates: start: 20250317
  29. COBAMAMIDE [Concomitant]
     Active Substance: COBAMAMIDE
     Dosage: 1.5 MG, TID
     Route: 048
     Dates: start: 20250414
  30. GRANULOCYTE COLONY-STIMULATING FACTOR NOS [Concomitant]
     Active Substance: GRANULOCYTE COLONY-STIMULATING FACTOR NOS
     Indication: White blood cell count decreased
     Dosage: 300 UG, OTHER ST
     Route: 058
     Dates: start: 20250728, end: 20250728
  31. PALONOSETRON HYDROCHLORIDE [Concomitant]
     Active Substance: PALONOSETRON HYDROCHLORIDE
     Indication: Prophylaxis of nausea and vomiting
     Dosage: 0.25 MG, OTHER ST
     Route: 042
     Dates: start: 20250730, end: 20250730
  32. PALONOSETRON HYDROCHLORIDE [Concomitant]
     Active Substance: PALONOSETRON HYDROCHLORIDE
     Indication: Allergy prophylaxis
  33. OLANZAPINE [Concomitant]
     Active Substance: OLANZAPINE
     Indication: Prophylaxis of nausea and vomiting
     Dosage: 2.5 MG, OTHER ST
     Route: 048
     Dates: start: 20250730, end: 20250730

REACTIONS (2)
  - Platelet count decreased [Recovered/Resolved]
  - Jaundice cholestatic [Not Recovered/Not Resolved]

NARRATIVE: CASE EVENT DATE: 20250825
